FAERS Safety Report 23452514 (Version 2)
Quarter: 2024Q3

REPORT INFORMATION
  Report Type: Spontaneous
  Country: US (occurrence: US)
  Receive Date: 20240129
  Receipt Date: 20240730
  Transmission Date: 20241016
  Serious: No
  Sender: SAREPTA THERAPEUTICS
  Company Number: US-SAREPTA THERAPEUTICS INC.-SRP2023-003939

PATIENT
  Age: 30 Year

DRUGS (1)
  1. AMONDYS 45 [Suspect]
     Active Substance: CASIMERSEN
     Indication: Product used for unknown indication
     Dosage: 1450 MILLIGRAM, WEEKLY
     Route: 042

REACTIONS (12)
  - Discomfort [Unknown]
  - Pruritus [Unknown]
  - Lip pruritus [Unknown]
  - Neck pain [Unknown]
  - Oral pain [Unknown]
  - Musculoskeletal chest pain [Unknown]
  - Lip swelling [Unknown]
  - Stomatitis [Unknown]
  - Rash [Unknown]
  - Inflammation [Unknown]
  - Cheilitis [Unknown]
  - Decubitus ulcer [Unknown]

NARRATIVE: CASE EVENT DATE: 20231001
